FAERS Safety Report 10184547 (Version 1)
Quarter: 2014Q2

REPORT INFORMATION
  Report Type: Spontaneous
  Country: AT (occurrence: AT)
  Receive Date: 20140521
  Receipt Date: 20140521
  Transmission Date: 20141212
  Serious: Yes (Hospitalization)
  Sender: FDA-Public Use
  Company Number: AT-009507513-1405AUT007371

PATIENT
  Sex: Female

DRUGS (1)
  1. DIAZOXIDE [Suspect]
     Dosage: UNK
     Route: 048

REACTIONS (1)
  - Adverse event [Unknown]
